FAERS Safety Report 10979412 (Version 1)
Quarter: 2015Q2

REPORT INFORMATION
  Report Type: Spontaneous
  Country: CH (occurrence: CH)
  Receive Date: 20150402
  Receipt Date: 20150402
  Transmission Date: 20150821
  Serious: Yes (Hospitalization)
  Sender: FDA-Public Use
  Company Number: CH-ABBVIE-15P-151-1370345-00

PATIENT
  Age: 21 Year
  Sex: Female

DRUGS (3)
  1. PROCORALAN [Interacting]
     Active Substance: IVABRADINE
     Route: 048
     Dates: start: 2015, end: 20150208
  2. PROCORALAN [Interacting]
     Active Substance: IVABRADINE
     Indication: TACHYCARDIA
     Route: 048
     Dates: end: 2015
  3. KLACID [Suspect]
     Active Substance: CLARITHROMYCIN
     Indication: RESPIRATORY TRACT INFECTION
     Route: 048
     Dates: start: 20150126, end: 20150208

REACTIONS (2)
  - Potentiating drug interaction [Recovered/Resolved]
  - Bradycardia [Recovered/Resolved]

NARRATIVE: CASE EVENT DATE: 20150126
